FAERS Safety Report 6917968-1 (Version None)
Quarter: 2010Q3

REPORT INFORMATION
  Report Type: 
  Country: None (occurrence: None)
  Receive Date: 20100810
  Receipt Date: 20100802
  Transmission Date: 20110219
  Serious: Yes (Other)
  Sender: FDA-Public Use
  Company Number: US-AMGEN-KDL428557

PATIENT
  Sex: Female

DRUGS (2)
  1. ENBREL [Suspect]
     Indication: PSORIATIC ARTHROPATHY
     Route: 058
  2. VICODIN [Concomitant]

REACTIONS (17)
  - ANGER [None]
  - ARTHRALGIA [None]
  - BLOOD GLUCOSE DECREASED [None]
  - BURNING SENSATION [None]
  - CONSTIPATION [None]
  - COUGH [None]
  - DECREASED APPETITE [None]
  - DEPRESSION [None]
  - DIARRHOEA [None]
  - DIVERTICULITIS [None]
  - ERYTHEMA [None]
  - HYPOAESTHESIA [None]
  - PARAESTHESIA [None]
  - PRURITUS GENERALISED [None]
  - RHINORRHOEA [None]
  - STOMATITIS [None]
  - WEIGHT DECREASED [None]
